FAERS Safety Report 9315154 (Version 1)
Quarter: 2013Q2

REPORT INFORMATION
  Report Type: Spontaneous
  Country: US (occurrence: US)
  Receive Date: 20130529
  Receipt Date: 20130529
  Transmission Date: 20140414
  Serious: No
  Sender: FDA-Public Use
  Company Number: US-ALLERGAN-1212799US

PATIENT
  Sex: Female

DRUGS (1)
  1. ZYMAXID [Suspect]
     Indication: CONJUNCTIVITIS
     Dosage: 2 GTT, QID
     Route: 047
     Dates: start: 20120912

REACTIONS (3)
  - Ocular hyperaemia [Not Recovered/Not Resolved]
  - Ocular hyperaemia [Not Recovered/Not Resolved]
  - Instillation site pain [Recovered/Resolved]
